FAERS Safety Report 6355193-6 (Version None)
Quarter: 2009Q3

REPORT INFORMATION
  Report Type: 
  Country: None (occurrence: None)
  Receive Date: 20090909
  Receipt Date: 20090826
  Transmission Date: 20100115
  Serious: Yes (Other)
  Sender: FDA-Public Use
  Company Number: AUR-APL-2009-00506

PATIENT
  Age: 40 Year
  Sex: Male

DRUGS (9)
  1. MIRTAZAPINE [Suspect]
     Dosage: 15MG, DAILY, ORAL
     Route: 048
  2. RISPERIDONE [Suspect]
     Dosage: 15MG, DAILY, ORAL
     Route: 048
  3. DULOXETINE HYDROCHLORIDE [Suspect]
  4. ABILIFY [Suspect]
     Indication: SCHIZOAFFECTIVE DISORDER
  5. QUETIAPINE FUMARATE [Suspect]
  6. VALPROATE SODIUM [Suspect]
  7. DRUG USED IN DIABETES [Concomitant]
  8. EFFEXOR [Concomitant]
  9. LITHIUM CARBONATE [Concomitant]

REACTIONS (4)
  - HYPOTHYROIDISM [None]
  - LIVER FUNCTION TEST ABNORMAL [None]
  - OBESITY [None]
  - TYPE 2 DIABETES MELLITUS [None]
